FAERS Safety Report 23532320 (Version 1)
Quarter: 2024Q1

REPORT INFORMATION
  Report Type: Spontaneous
  Country: US (occurrence: None)
  Receive Date: 20240215
  Receipt Date: 20240215
  Transmission Date: 20240409
  Serious: Yes (Congenital Anomaly)
  Sender: FDA-Public Use
  Company Number: None

PATIENT
  Age: 3 Day
  Sex: Male

DRUGS (1)
  1. FLUOXETINE [Suspect]
     Active Substance: FLUOXETINE HYDROCHLORIDE

REACTIONS (6)
  - Respiratory distress [None]
  - Cyanosis [None]
  - Ventricular septal defect [None]
  - Atrial septal defect [None]
  - Atrial septal defect [None]
  - Maternal drugs affecting foetus [None]

NARRATIVE: CASE EVENT DATE: 20191112
